FAERS Safety Report 6196057-0 (Version None)
Quarter: 2009Q2

REPORT INFORMATION
  Report Type: 
  Country: None (occurrence: None)
  Receive Date: 20090520
  Receipt Date: 20090508
  Transmission Date: 20091009
  Serious: Yes (Hospitalization)
  Sender: FDA-Public Use
  Company Number: MX-PFIZER INC-2007081395

PATIENT
  Age: 43 Year

DRUGS (4)
  1. SUNITINIB MALATE [Suspect]
     Indication: RENAL CELL CARCINOMA
     Dosage: 37.5 MG QD
     Route: 048
     Dates: start: 20070620
  2. PREGABALIN [Concomitant]
     Route: 048
     Dates: start: 20070827
  3. TRAMADOL HCL [Concomitant]
     Route: 048
     Dates: start: 20070903
  4. DICLOFENAC [Concomitant]
     Dosage: 75 MG, UNK
     Route: 042
     Dates: start: 20070903, end: 20070904

REACTIONS (1)
  - PERIPHERAL SENSORY NEUROPATHY [None]
